FAERS Safety Report 14438963 (Version 1)
Quarter: 2018Q1

REPORT INFORMATION
  Report Type: Spontaneous
  Country: US (occurrence: US)
  Receive Date: 20180125
  Receipt Date: 20180125
  Transmission Date: 20180509
  Serious: No
  Sender: FDA-Public Use
  Company Number: US-UNITED THERAPEUTICS-UNT-2017-014131

PATIENT
  Sex: Female
  Weight: 65.76 kg

DRUGS (7)
  1. ADCIRCA [Concomitant]
     Active Substance: TADALAFIL
     Indication: PRODUCT USED FOR UNKNOWN INDICATION
     Dosage: UNK
     Route: 065
  2. OPSUMIT [Concomitant]
     Active Substance: MACITENTAN
     Indication: PRODUCT USED FOR UNKNOWN INDICATION
     Dosage: UNK
     Route: 065
  3. TYVASO [Suspect]
     Active Substance: TREPROSTINIL
     Dosage: 36-42 MICROGRAMS, UNK
  4. TYVASO [Suspect]
     Active Substance: TREPROSTINIL
     Indication: PULMONARY HYPERTENSION
     Dosage: 18-54 MICROGRAMS, QID
     Dates: start: 20120223
  5. TYVASO [Suspect]
     Active Substance: TREPROSTINIL
     Dosage: 54 ?G, UNK
  6. TYVASO [Suspect]
     Active Substance: TREPROSTINIL
     Indication: PULMONARY ARTERIAL HYPERTENSION
     Dosage: 18-72 MICROGRAMS, QID
  7. TYVASO [Suspect]
     Active Substance: TREPROSTINIL
     Dosage: 42-48 MICROGRAMS, UNK

REACTIONS (12)
  - Oropharyngeal pain [Unknown]
  - Fatigue [Unknown]
  - Asthenia [Unknown]
  - Drug intolerance [Unknown]
  - Limb discomfort [Unknown]
  - Somnolence [Unknown]
  - Muscle spasms [Unknown]
  - Sleep disorder [Unknown]
  - Pulse abnormal [Unknown]
  - Chest discomfort [Unknown]
  - Off label use [Unknown]
  - Blood pressure abnormal [Unknown]
